FAERS Safety Report 19008710 (Version 3)
Quarter: 2021Q3

REPORT INFORMATION
  Report Type: Report from Study
  Country: None (occurrence: US)
  Receive Date: 20210316
  Receipt Date: 20210915
  Transmission Date: 20211014
  Serious: Yes (Other)
  Sender: FDA-Public Use
  Company Number: US-ABBVIE-21K-163-3780504-00

PATIENT
  Sex: Male
  Weight: 103.97 kg

DRUGS (1)
  1. HUMIRA [Suspect]
     Active Substance: ADALIMUMAB
     Indication: PSORIATIC ARTHROPATHY
     Dosage: CITRATE FREE
     Route: 058

REACTIONS (6)
  - Throat cancer [Unknown]
  - Dermatitis allergic [Unknown]
  - Foot fracture [Unknown]
  - Allergy to animal [Unknown]
  - Pneumonia [Unknown]
  - Foot deformity [Unknown]
